FAERS Safety Report 4315494-X (Version None)
Quarter: 2004Q1

REPORT INFORMATION
  Report Type: 
  Country: None (occurrence: None)
  Receive Date: 20040310
  Receipt Date: 20040224
  Transmission Date: 20041129
  Serious: Yes (Hospitalization)
  Sender: FDA-Public Use
  Company Number: US-JNJFOC-20040101705

PATIENT
  Age: 73 Year
  Sex: Female

DRUGS (5)
  1. DURAGESIC [Suspect]
     Indication: BACK PAIN
     Dosage: 25 UG/HR, 1 IN 72 HOUR, TRANSDERMAL
     Route: 062
     Dates: start: 20031223
  2. METHOCARBAMOL [Suspect]
     Indication: MUSCLE RELAXANT THERAPY
     Dosage: 500 MG
     Dates: start: 20031201
  3. PROZAC [Concomitant]
  4. ACETAMINOPHEN [Concomitant]
  5. OXYCODONE (OXYCODONE) [Concomitant]

REACTIONS (12)
  - ABNORMAL DREAMS [None]
  - ATRIAL FIBRILLATION [None]
  - CHEST PAIN [None]
  - DRUG INEFFECTIVE [None]
  - DRY MOUTH [None]
  - DYSPEPSIA [None]
  - HYPOAESTHESIA [None]
  - JOINT SWELLING [None]
  - MEMORY IMPAIRMENT [None]
  - OEDEMA PERIPHERAL [None]
  - PANIC ATTACK [None]
  - THROAT IRRITATION [None]
